FAERS Safety Report 7478577-1 (Version None)
Quarter: 2011Q2

REPORT INFORMATION
  Report Type: 
  Country: None (occurrence: None)
  Receive Date: 20110513
  Receipt Date: 20110505
  Transmission Date: 20111010
  Serious: Yes (Other)
  Sender: FDA-Public Use
  Company Number: GB-TEVA-281182ISR

PATIENT
  Age: 62 Year
  Sex: Male

DRUGS (4)
  1. DEXAMETHASONE [Suspect]
  2. TOBRAMYCIN [Suspect]
  3. CYCLOPENTOLATE HCL [Suspect]
  4. TAMSULOSIN HCL [Suspect]

REACTIONS (5)
  - VISUAL ACUITY REDUCED [None]
  - VOMITING [None]
  - INTRAOCULAR PRESSURE INCREASED [None]
  - ANGLE CLOSURE GLAUCOMA [None]
  - EYE PAIN [None]
